FAERS Safety Report 4335766-2 (Version None)
Quarter: 2004Q2

REPORT INFORMATION
  Report Type: 
  Country: None (occurrence: None)
  Receive Date: 20040409
  Receipt Date: 20040331
  Transmission Date: 20050107
  Serious: Yes (Other)
  Sender: FDA-Public Use
  Company Number: US-JNJFOC-20040306784

PATIENT
  Age: 73 Year
  Sex: Male

DRUGS (15)
  1. NATRECOR [Suspect]
     Route: 042
  2. NATRECOR [Suspect]
     Route: 042
  3. ASPIRIN [Concomitant]
  4. COZAAR [Concomitant]
     Route: 049
  5. COREG [Concomitant]
  6. ZOLOFT [Concomitant]
  7. ZOCOR [Concomitant]
  8. LASIX [Concomitant]
     Dosage: EVERY OTHER DAY
  9. LASIX [Concomitant]
  10. METOLAZONE [Concomitant]
     Dosage: MONDAYS AND THURSDAYS
  11. DIGOXIN [Concomitant]
  12. SYNTHROID [Concomitant]
  13. FOLIC ACID [Concomitant]
  14. NOVOLOG [Concomitant]
     Dosage: WITH EACH MEAL
  15. NPH INSULIN [Concomitant]
     Dosage: AT NIGHT

REACTIONS (7)
  - BRADYCARDIA [None]
  - CONDITION AGGRAVATED [None]
  - HAEMATOCRIT DECREASED [None]
  - HAEMOGLOBIN DECREASED [None]
  - IMPLANT SITE HAEMORRHAGE [None]
  - PLATELET COUNT DECREASED [None]
  - PROTHROMBIN TIME PROLONGED [None]
